FAERS Safety Report 6539241-6 (Version None)
Quarter: 2010Q1

REPORT INFORMATION
  Report Type: 
  Country: None (occurrence: None)
  Receive Date: 20100115
  Receipt Date: 20100105
  Transmission Date: 20100710
  Serious: Yes (Other)
  Sender: FDA-Public Use
  Company Number: US-JNJFOC-20100100950

PATIENT
  Sex: Male

DRUGS (1)
  1. INTELENCE [Suspect]
     Indication: HIV INFECTION
     Route: 048

REACTIONS (2)
  - HYPERTENSION [None]
  - SYNCOPE [None]
